FAERS Safety Report 25645166 (Version 3)
Quarter: 2025Q3

REPORT INFORMATION
  Report Type: Spontaneous
  Country: JP (occurrence: JP)
  Receive Date: 20250805
  Receipt Date: 20250901
  Transmission Date: 20251021
  Serious: Yes (Other)
  Sender: TAKEDA
  Company Number: JP-TAKEDA-2025TUS069272

PATIENT
  Age: 39 Year
  Sex: Male
  Weight: 58 kg

DRUGS (4)
  1. LIALDA [Suspect]
     Active Substance: MESALAMINE
     Indication: Colitis ulcerative
  2. LIALDA [Suspect]
     Active Substance: MESALAMINE
     Dosage: 2400 MILLIGRAM, QD
     Dates: start: 20210409, end: 20211212
  3. LIALDA [Suspect]
     Active Substance: MESALAMINE
     Dosage: 2400 MILLIGRAM, QD
     Dates: start: 20250208, end: 202506
  4. Lopemin [Concomitant]
     Indication: Colitis ulcerative
     Dosage: 4 DOSAGE FORM, TID
     Dates: start: 20210409, end: 20211212

REACTIONS (2)
  - Drug-induced liver injury [Recovering/Resolving]
  - Large intestine polyp [Unknown]

NARRATIVE: CASE EVENT DATE: 20250123
